FAERS Safety Report 9871179 (Version 4)
Quarter: 2015Q1

REPORT INFORMATION
  Report Type: Spontaneous
  Country: US (occurrence: US)
  Receive Date: 20140205
  Receipt Date: 20150224
  Transmission Date: 20150721
  Serious: No
  Sender: FDA-Public Use
  Company Number: US-B.I. PHARMACEUTICALS,INC./RIDGEFIELD-2014-BI-04467BP

PATIENT
  Age: 69 Year
  Sex: Female

DRUGS (1)
  1. JENTADUETO [Suspect]
     Active Substance: LINAGLIPTIN\METFORMIN HYDROCHLORIDE
     Indication: BLOOD GLUCOSE INCREASED
     Dosage: STRENGTH: 2.5 MG / 500 MG; DAILY DOSE: 5 MG/ 1000 MG
     Route: 048
     Dates: start: 201311, end: 201401

REACTIONS (12)
  - Rash [Not Recovered/Not Resolved]
  - Nausea [Not Recovered/Not Resolved]
  - Rash [Unknown]
  - Product quality issue [Not Recovered/Not Resolved]
  - Palpitations [Recovered/Resolved]
  - Visual impairment [Not Recovered/Not Resolved]
  - Blood glucose increased [Not Recovered/Not Resolved]
  - Tremor [Recovered/Resolved]
  - Rash pruritic [Not Recovered/Not Resolved]
  - Accidental overdose [Recovered/Resolved]
  - Pain in extremity [Not Recovered/Not Resolved]
  - Anxiety [Not Recovered/Not Resolved]

NARRATIVE: CASE EVENT DATE: 201311
